FAERS Safety Report 11394821 (Version 1)
Quarter: 2015Q3

REPORT INFORMATION
  Report Type: Spontaneous
  Country: US (occurrence: None)
  Receive Date: 20150817
  Receipt Date: 20150817
  Transmission Date: 20151125
  Serious: Yes (Hospitalization)
  Sender: FDA-Public Use
  Company Number: DEP_06122_2015

PATIENT
  Age: 22 Year
  Sex: Female

DRUGS (1)
  1. GABAPENTIN. [Suspect]
     Active Substance: GABAPENTIN
     Indication: PRODUCT USED FOR UNKNOWN INDICATION
     Dosage: DF

REACTIONS (8)
  - Hallucinations, mixed [None]
  - Myoclonus [None]
  - Haemodialysis [None]
  - Mental status changes [None]
  - Acute kidney injury [None]
  - Tachycardia [None]
  - Muscle spasms [None]
  - Pain in extremity [None]
